FAERS Safety Report 19271484 (Version 1)
Quarter: 2021Q2

REPORT INFORMATION
  Report Type: Other
  Country: US (occurrence: US)
  Receive Date: 20210518
  Receipt Date: 20210518
  Transmission Date: 20210717
  Serious: Yes (Hospitalization)
  Sender: FDA-Public Use
  Company Number: US-ROCHE-2831558

PATIENT

DRUGS (1)
  1. ACTILYSE [Suspect]
     Active Substance: ALTEPLASE
     Indication: ARTERIOVENOUS FISTULA
     Dosage: RATE/DURATION OF RTPA INFUSION WAS 1 MG/H X 14 H
     Route: 042

REACTIONS (4)
  - Hyperkalaemia [Not Recovered/Not Resolved]
  - Vascular access complication [Not Recovered/Not Resolved]
  - Septic shock [Not Recovered/Not Resolved]
  - Stenosis [Not Recovered/Not Resolved]
